FAERS Safety Report 8242330-1 (Version None)
Quarter: 2012Q1

REPORT INFORMATION
  Report Type: 
  Country: None (occurrence: None)
  Receive Date: 20120329
  Receipt Date: 20120316
  Transmission Date: 20120608
  Serious: No
  Sender: FDA-Public Use
  Company Number: US-B.I. PHARMACEUTICALS,INC./RIDGEFIELD-2011-BP-18963BP

PATIENT
  Sex: Female

DRUGS (8)
  1. COMBIVENT [Suspect]
     Indication: EMPHYSEMA
     Dosage: 16 PUF
     Route: 055
     Dates: start: 20020101
  2. POTASSIUM [Concomitant]
     Indication: ELECTROLYTE SUBSTITUTION THERAPY
     Route: 048
     Dates: start: 20111201
  3. PREDNISONE (TAPER DOSE) [Concomitant]
     Indication: EMPHYSEMA
     Route: 048
  4. ADVAIR DISKUS 100/50 [Concomitant]
     Indication: EMPHYSEMA
     Dosage: 2 PUF
     Route: 055
     Dates: start: 20100101
  5. OXYGEN [Concomitant]
     Indication: EMPHYSEMA
     Route: 045
  6. FUROSEMIDE [Concomitant]
     Indication: FLUID RETENTION
     Route: 048
     Dates: start: 20111201
  7. REVATIO [Concomitant]
     Indication: EMPHYSEMA
     Dosage: 60 MG
     Route: 048
     Dates: start: 20120201
  8. SPIRIVA [Concomitant]
     Indication: EMPHYSEMA
     Dosage: 18 MCG
     Route: 055
     Dates: start: 20070101

REACTIONS (1)
  - DRUG INEFFECTIVE [None]
